FAERS Safety Report 11000751 (Version 1)
Quarter: 2015Q2

REPORT INFORMATION
  Report Type: Spontaneous
  Country: US (occurrence: US)
  Receive Date: 20150408
  Receipt Date: 20150408
  Transmission Date: 20150821
  Serious: No
  Sender: FDA-Public Use
  Company Number: US-SA-2014SA124830

PATIENT
  Age: 89 Year
  Sex: Female

DRUGS (1)
  1. ALLEGRA [Suspect]
     Active Substance: FEXOFENADINE HYDROCHLORIDE
     Indication: DIZZINESS
     Dosage: TAKEN FROM: 2 DAYS AGO
     Route: 048
     Dates: end: 20140906

REACTIONS (4)
  - Cough [Unknown]
  - Headache [Unknown]
  - Somnolence [Unknown]
  - Product use issue [Unknown]
